FAERS Safety Report 9260613 (Version 7)
Quarter: 2014Q4

REPORT INFORMATION
  Report Type: Spontaneous
  Country: US (occurrence: US)
  Receive Date: 20130429
  Receipt Date: 20141030
  Transmission Date: 20150529
  Serious: Yes (Other)
  Sender: FDA-Public Use
  Company Number: US-PFIZER INC-2013131907

PATIENT
  Sex: Male

DRUGS (2)
  1. LYRICA [Suspect]
     Active Substance: PREGABALIN
     Indication: NEUROPATHY PERIPHERAL
     Dosage: UNK
  2. VIAGRA [Suspect]
     Active Substance: SILDENAFIL CITRATE
     Dosage: UNK

REACTIONS (8)
  - Muscle spasms [Unknown]
  - Gait disturbance [Recovering/Resolving]
  - Pain [Unknown]
  - Diabetes mellitus [Unknown]
  - Burning sensation [Unknown]
  - Fatigue [Unknown]
  - Movement disorder [Unknown]
  - Back pain [Unknown]
